FAERS Safety Report 14509194 (Version 1)
Quarter: 2018Q1

REPORT INFORMATION
  Report Type: Report from Study
  Country: JP (occurrence: JP)
  Receive Date: 20180209
  Receipt Date: 20180209
  Transmission Date: 20180509
  Serious: Yes (Disabling, Other)
  Sender: FDA-Public Use
  Company Number: JP-ASTELLAS-2016JP010473

PATIENT
  Age: 54 Year
  Sex: Male

DRUGS (54)
  1. TACROLIMUS. [Suspect]
     Active Substance: TACROLIMUS
     Route: 048
     Dates: start: 20141011, end: 20141014
  2. PREDONINE [Suspect]
     Active Substance: PREDNISOLONE
     Indication: PRODUCT USED FOR UNKNOWN INDICATION
     Route: 048
     Dates: start: 20140912, end: 20141110
  3. PREDONINE [Suspect]
     Active Substance: PREDNISOLONE
     Route: 048
     Dates: start: 20150306, end: 20150319
  4. PREDONINE [Suspect]
     Active Substance: PREDNISOLONE
     Route: 048
     Dates: start: 20150320, end: 20150402
  5. PREDONINE [Suspect]
     Active Substance: PREDNISOLONE
     Route: 048
     Dates: start: 20150501, end: 20150514
  6. ENDOXAN                            /00021101/ [Concomitant]
     Active Substance: CYCLOPHOSPHAMIDE
     Indication: DERMATOMYOSITIS
     Route: 065
     Dates: start: 20141012, end: 20141012
  7. TOFACITINIB CITRATE [Concomitant]
     Active Substance: TOFACITINIB CITRATE
     Route: 048
     Dates: start: 20150126
  8. CANCIDAS [Concomitant]
     Active Substance: CASPOFUNGIN ACETATE
     Indication: SYSTEMIC MYCOSIS
     Route: 065
     Dates: start: 20141117, end: 20141216
  9. TACROLIMUS. [Suspect]
     Active Substance: TACROLIMUS
     Indication: DERMATOMYOSITIS
     Route: 048
     Dates: start: 20140917, end: 20140918
  10. TACROLIMUS. [Suspect]
     Active Substance: TACROLIMUS
     Route: 048
     Dates: start: 20140923, end: 20140930
  11. TACROLIMUS. [Suspect]
     Active Substance: TACROLIMUS
     Route: 048
     Dates: start: 20141001, end: 20141005
  12. TACROLIMUS. [Suspect]
     Active Substance: TACROLIMUS
     Route: 048
     Dates: start: 20141006, end: 20141010
  13. TACROLIMUS. [Suspect]
     Active Substance: TACROLIMUS
     Route: 048
     Dates: start: 20141208, end: 20141229
  14. ENDOXAN                            /00021101/ [Concomitant]
     Active Substance: CYCLOPHOSPHAMIDE
     Route: 065
     Dates: start: 20141111, end: 20141111
  15. LASIX [Concomitant]
     Active Substance: FUROSEMIDE
     Indication: OEDEMA
     Route: 048
     Dates: start: 20141022, end: 20141202
  16. FORTEO [Concomitant]
     Active Substance: TERIPARATIDE
     Indication: OSTEOPOROTIC FRACTURE
     Dosage: 0.6 MG, ONCE DAILY
     Route: 065
     Dates: start: 20150312
  17. PREDONINE [Suspect]
     Active Substance: PREDNISOLONE
     Route: 048
     Dates: start: 20141218, end: 20150125
  18. PREDONINE [Suspect]
     Active Substance: PREDNISOLONE
     Route: 048
     Dates: start: 20150126, end: 20150219
  19. METHYLPREDNISOLONE SODIUM SUCCINATE. [Suspect]
     Active Substance: METHYLPREDNISOLONE SODIUM SUCCINATE
     Indication: PRODUCT USED FOR UNKNOWN INDICATION
     Route: 065
     Dates: start: 20141009, end: 20141011
  20. DENOSINE                           /00784201/ [Concomitant]
     Active Substance: GANCICLOVIR
     Indication: CYTOMEGALOVIRUS INFECTION
     Route: 065
     Dates: start: 20141022, end: 20141118
  21. VALIXA [Concomitant]
     Active Substance: VALGANCICLOVIR
     Indication: CYTOMEGALOVIRUS INFECTION
     Route: 048
     Dates: start: 20141217, end: 20141229
  22. WARFARIN                           /00014803/ [Concomitant]
     Active Substance: WARFARIN
     Indication: PULMONARY EMBOLISM
     Route: 048
     Dates: start: 20150128
  23. TACROLIMUS. [Suspect]
     Active Substance: TACROLIMUS
     Route: 048
     Dates: start: 20140919, end: 20140922
  24. TACROLIMUS. [Suspect]
     Active Substance: TACROLIMUS
     Route: 048
     Dates: start: 20141015, end: 20141207
  25. PREDONINE [Suspect]
     Active Substance: PREDNISOLONE
     Route: 048
     Dates: start: 20141111, end: 20141217
  26. ENDOXAN                            /00021101/ [Concomitant]
     Active Substance: CYCLOPHOSPHAMIDE
     Indication: INTERSTITIAL LUNG DISEASE
     Route: 065
     Dates: start: 20140918, end: 20140918
  27. TOFACITINIB CITRATE [Concomitant]
     Active Substance: TOFACITINIB CITRATE
     Indication: INTERSTITIAL LUNG DISEASE
     Route: 048
     Dates: start: 20141127, end: 20150104
  28. FUNGIZONE [Concomitant]
     Active Substance: AMPHOTERICIN B
     Indication: ORAL CANDIDIASIS
     Route: 048
     Dates: start: 20140923, end: 20141001
  29. MIYA-BM [Concomitant]
     Active Substance: CLOSTRIDIUM BUTYRICUM SPORES STRAIN M-55
     Indication: PROPHYLAXIS
     Route: 048
     Dates: start: 20141018
  30. PREDONINE [Suspect]
     Active Substance: PREDNISOLONE
     Route: 048
     Dates: start: 20150515
  31. TOFACITINIB CITRATE [Concomitant]
     Active Substance: TOFACITINIB CITRATE
     Indication: DERMATOMYOSITIS
     Route: 048
     Dates: start: 20150105, end: 20150125
  32. MAGMITT [Concomitant]
     Active Substance: MAGNESIUM OXIDE
     Indication: PROPHYLAXIS
     Route: 048
     Dates: start: 20140913, end: 20150519
  33. CRAVIT [Concomitant]
     Active Substance: LEVOFLOXACIN
     Indication: SALMONELLA BACTERAEMIA
     Route: 048
     Dates: start: 20141018, end: 20141202
  34. ATORVASTATIN                       /01326102/ [Concomitant]
     Active Substance: ATORVASTATIN
     Indication: HYPERCHOLESTEROLAEMIA
     Route: 048
     Dates: start: 20150312
  35. PREDONINE [Suspect]
     Active Substance: PREDNISOLONE
     Route: 048
     Dates: start: 20150403, end: 20150416
  36. INFLIXIMAB [Concomitant]
     Active Substance: INFLIXIMAB
     Indication: INTERSTITIAL LUNG DISEASE
     Route: 065
     Dates: start: 20141015, end: 20141015
  37. INFLIXIMAB [Concomitant]
     Active Substance: INFLIXIMAB
     Indication: DERMATOMYOSITIS
     Route: 065
     Dates: start: 20141029, end: 20141029
  38. PARIET [Concomitant]
     Active Substance: RABEPRAZOLE SODIUM
     Indication: PROPHYLAXIS
     Route: 048
     Dates: start: 20140912
  39. DAIPHEN [Concomitant]
     Active Substance: SULFAMETHOXAZOLE\TRIMETHOPRIM
     Indication: PROPHYLAXIS
     Dosage: UNK UNK, UNKNOWN FREQ.
     Route: 048
     Dates: start: 20141001
  40. ZITHROMAC [Concomitant]
     Active Substance: AZITHROMYCIN DIHYDRATE
     Indication: SALMONELLA BACTERAEMIA
     Route: 048
     Dates: start: 20141018, end: 20141018
  41. TACROLIMUS. [Suspect]
     Active Substance: TACROLIMUS
     Indication: INTERSTITIAL LUNG DISEASE
     Route: 048
     Dates: start: 20140912, end: 20140916
  42. INFLIXIMAB [Concomitant]
     Active Substance: INFLIXIMAB
     Route: 065
     Dates: start: 20141114, end: 20141114
  43. NIFEDIPINE. [Concomitant]
     Active Substance: NIFEDIPINE
     Indication: HYPERTENSION
     Route: 048
     Dates: start: 20141105, end: 20141130
  44. AMLODIPINE                         /00972402/ [Concomitant]
     Active Substance: AMLODIPINE BESYLATE
     Indication: HYPERTENSION
     Route: 048
     Dates: start: 20141201
  45. MEROPENEM. [Concomitant]
     Active Substance: MEROPENEM
     Indication: PYREXIA
     Route: 065
     Dates: start: 20141015, end: 20141028
  46. TRAMCET [Concomitant]
     Active Substance: ACETAMINOPHEN\TRAMADOL
     Indication: OSTEOPOROTIC FRACTURE
     Dosage: UNK UNK, UNKNOWN FREQ.
     Route: 048
     Dates: start: 20150310
  47. PREDONINE [Suspect]
     Active Substance: PREDNISOLONE
     Route: 048
     Dates: start: 20150220, end: 20150305
  48. PREDONINE [Suspect]
     Active Substance: PREDNISOLONE
     Route: 048
     Dates: start: 20150306
  49. PREDONINE [Suspect]
     Active Substance: PREDNISOLONE
     Route: 048
     Dates: start: 20150417, end: 20150430
  50. KEFRAL [Concomitant]
     Active Substance: CEFACLOR
     Indication: PROPHYLAXIS
     Route: 048
     Dates: start: 20140915, end: 20140918
  51. BIOFERMIN R [Concomitant]
     Active Substance: BACILLUS SUBTILIS\LACTOBACILLUS ACIDOPHILUS\STREPTOCOCCUS FAECAIS
     Indication: PROPHYLAXIS
     Route: 048
     Dates: start: 20141018, end: 20141202
  52. LASIX [Concomitant]
     Active Substance: FUROSEMIDE
     Route: 048
     Dates: start: 20141203, end: 20141216
  53. LASIX [Concomitant]
     Active Substance: FUROSEMIDE
     Route: 048
     Dates: start: 20141217, end: 20141225
  54. ALLELOCK [Concomitant]
     Active Substance: OLOPATADINE HYDROCHLORIDE
     Indication: PROPHYLAXIS
     Route: 048
     Dates: start: 20141027, end: 20150116

REACTIONS (10)
  - Salmonella bacteraemia [Recovered/Resolved]
  - Oedema [Recovered/Resolved]
  - Cytomegalovirus infection [Recovered/Resolved]
  - Oral candidiasis [Recovered/Resolved]
  - Iron deficiency anaemia [Recovering/Resolving]
  - Hypertension [Recovering/Resolving]
  - Pulmonary embolism [Recovered/Resolved]
  - Osteoporotic fracture [Recovering/Resolving]
  - Systemic mycosis [Recovered/Resolved]
  - Renal impairment [Recovered/Resolved]

NARRATIVE: CASE EVENT DATE: 20140923
